FAERS Safety Report 18033242 (Version 4)
Quarter: 2021Q2

REPORT INFORMATION
  Report Type: Spontaneous
  Country: US (occurrence: US)
  Receive Date: 20200716
  Receipt Date: 20210502
  Transmission Date: 20210717
  Serious: Yes (Other)
  Sender: FDA-Public Use
  Company Number: US-BIOGEN-2020BI00898136

PATIENT
  Age: 63 Year
  Sex: Male

DRUGS (2)
  1. TECFIDERA [Suspect]
     Active Substance: DIMETHYL FUMARATE
     Indication: MULTIPLE SCLEROSIS
     Dosage: STARTING DOSE
     Route: 065
     Dates: start: 20150819, end: 20150826
  2. TECFIDERA [Suspect]
     Active Substance: DIMETHYL FUMARATE
     Dosage: MAINTENANCE DOSE
     Route: 048
     Dates: start: 20150827

REACTIONS (15)
  - Cerebrovascular accident [Recovered/Resolved with Sequelae]
  - Dysphemia [Unknown]
  - Cognitive disorder [Unknown]
  - Muscle fatigue [Unknown]
  - Amnesia [Not Recovered/Not Resolved]
  - Drooling [Unknown]
  - Aphasia [Unknown]
  - Alcohol problem [Unknown]
  - Drug abuse [Unknown]
  - Balance disorder [Unknown]
  - Flushing [Unknown]
  - Hot flush [Not Recovered/Not Resolved]
  - Confusional state [Unknown]
  - Cerebral disorder [Unknown]
  - Lacrimation increased [Unknown]

NARRATIVE: CASE EVENT DATE: 2015
